FAERS Safety Report 12316345 (Version 2)
Quarter: 2016Q4

REPORT INFORMATION
  Report Type: Report from Study
  Country: US (occurrence: US)
  Receive Date: 20160429
  Receipt Date: 20161116
  Transmission Date: 20170207
  Serious: Yes (Death, Other)
  Sender: FDA-Public Use
  Company Number: US-BRISTOL-MYERS SQUIBB COMPANY-BMS-2016-030696

PATIENT
  Age: 83 Year
  Sex: Female

DRUGS (1)
  1. DASATINIB [Suspect]
     Active Substance: DASATINIB
     Indication: CHRONIC MYELOID LEUKAEMIA
     Dosage: 60 MG, QD
     Route: 048

REACTIONS (4)
  - Thrombosis [Unknown]
  - Cerebral haemorrhage [Fatal]
  - Prescribed underdose [Unknown]
  - Paralysis [Unknown]

NARRATIVE: CASE EVENT DATE: 20160401
